FAERS Safety Report 4508868-5 (Version None)
Quarter: 2004Q4

REPORT INFORMATION
  Report Type: 
  Country: None (occurrence: None)
  Receive Date: 20041123
  Receipt Date: 20030910
  Transmission Date: 20050328
  Serious: Yes (Other)
  Sender: FDA-Public Use
  Company Number: US-BRISTOL-MYERS SQUIBB COMPANY-12379434

PATIENT
  Age: 68 Year
  Sex: Male
  Weight: 118 kg

DRUGS (4)
  1. PRAVACHOL [Suspect]
     Indication: BLOOD CHOLESTEROL INCREASED
     Route: 048
  2. TOPROL-XL [Concomitant]
  3. FLOMAX [Concomitant]
  4. ECOTRIN [Concomitant]

REACTIONS (4)
  - CHEST WALL PAIN [None]
  - MYALGIA [None]
  - PULMONARY MASS [None]
  - RIB FRACTURE [None]
